FAERS Safety Report 8070653-8 (Version None)
Quarter: 2012Q1

REPORT INFORMATION
  Report Type: 
  Country: None (occurrence: None)
  Receive Date: 20120125
  Receipt Date: 20120119
  Transmission Date: 20120608
  Serious: Yes (Hospitalization)
  Sender: FDA-Public Use
  Company Number: PHEH2011US012641

PATIENT
  Sex: Female
  Weight: 50.794 kg

DRUGS (13)
  1. GABAPENTIN [Concomitant]
     Dosage: 100 MG, UNK
  2. NEURONTIN [Concomitant]
     Dosage: 300 MG, UNK
  3. VIVELLE [Concomitant]
     Dosage: UNK UKN, UNK
  4. MULTI-VITAMINS [Concomitant]
     Dosage: UNK UKN, UNK
  5. GILENYA [Suspect]
     Indication: MULTIPLE SCLEROSIS
     Dosage: 0.5 MG,
     Route: 048
     Dates: start: 20111201
  6. RITALIN [Concomitant]
     Dosage: 5 MG, UNK
  7. RITALIN [Concomitant]
     Dosage: 20 MG, UNK
  8. SINGULAIR [Concomitant]
     Dosage: 10 MG, UNK
  9. XYZAL [Concomitant]
     Dosage: 5 MG, UNK
  10. VITAMIN D [Concomitant]
     Dosage: 1000 U, QD
  11. XANAX [Concomitant]
     Indication: ANXIETY
     Dosage: 0.25 MG, PRN
  12. ADVAIR DISKUS 100/50 [Concomitant]
     Dosage: UNK UKN, UNK
  13. VITAMIN D [Concomitant]
     Dosage: 400 U, UNK

REACTIONS (10)
  - POSITIVE ROMBERGISM [None]
  - HEART RATE INCREASED [None]
  - BLOOD PRESSURE INCREASED [None]
  - MUSCULAR WEAKNESS [None]
  - HYPOAESTHESIA [None]
  - FATIGUE [None]
  - ASTHENIA [None]
  - DYSKINESIA [None]
  - DISTURBANCE IN ATTENTION [None]
  - MULTIPLE SCLEROSIS RELAPSE [None]
